FAERS Safety Report 5365635-0 (Version None)
Quarter: 2007Q2

REPORT INFORMATION
  Report Type: 
  Country: None (occurrence: None)
  Receive Date: 20070621
  Receipt Date: 20070619
  Transmission Date: 20071010
  Serious: Yes (Other)
  Sender: FDA-Public Use
  Company Number: DEWYE875919JUN07

PATIENT
  Age: 71 Year
  Sex: Female
  Weight: 77 kg

DRUGS (15)
  1. TYGACIL [Suspect]
     Indication: PERITONITIS
     Dosage: 100 MG ONCE
     Route: 042
     Dates: start: 20070421, end: 20070421
  2. TYGACIL [Suspect]
     Route: 042
     Dates: start: 20070422, end: 20070502
  3. FRAGMIN [Concomitant]
     Dosage: UNKNOWN
  4. BELOC [Concomitant]
     Dosage: UNKNOWN
  5. ENALAPRIL MALEATE [Concomitant]
     Dosage: UNKNOWN
  6. AMLODIPINE [Concomitant]
     Dosage: UNKNOWN
  7. DIFLUCAN [Concomitant]
     Dates: start: 20070421, end: 20070504
  8. ESIDRIX [Concomitant]
     Dosage: UNKNOWN
  9. ALDACTONE [Concomitant]
     Dosage: UNKNOWN
  10. TORSEMIDE [Concomitant]
     Dosage: UNKNOWN
  11. SELENASE [Concomitant]
     Dosage: UNKNOWN
  12. HYDROCORTISON [Concomitant]
     Dosage: UNKNOWN
  13. ACETYLCYSTEINE [Concomitant]
     Dosage: UNKNOWN
  14. HEPARIN [Concomitant]
     Dosage: UNKNOWN
  15. DIGIMERCK [Concomitant]
     Dosage: UNKNOWN

REACTIONS (1)
  - SEPSIS [None]
